FAERS Safety Report 14420086 (Version 2)
Quarter: 2019Q3

REPORT INFORMATION
  Report Type: Report from Study
  Country: JP (occurrence: JP)
  Receive Date: 20180122
  Receipt Date: 20190709
  Transmission Date: 20191004
  Serious: Yes (Death)
  Sender: FDA-Public Use
  Company Number: JP-PFIZER INC-2018024096

PATIENT

DRUGS (2)
  1. DOCETAXEL. [Suspect]
     Active Substance: DOCETAXEL
     Indication: NON-SMALL CELL LUNG CANCER RECURRENT
     Dosage: 60 MG/M2, CYCLIC (ON DAY 1 OF A 21-DAY CYCLE)
     Route: 042
  2. ERLOTINIB [Suspect]
     Active Substance: ERLOTINIB
     Indication: NON-SMALL CELL LUNG CANCER RECURRENT
     Dosage: 150 MG, CYCLIC (ON DAYS 2 TO 16 OF A 21-DAY CYCLE)
     Route: 048

REACTIONS (1)
  - Pleural infection [Fatal]
